FAERS Safety Report 10171265 (Version 1)
Quarter: 2014Q2

REPORT INFORMATION
  Report Type: Spontaneous
  Country: US (occurrence: None)
  Receive Date: 20140428
  Receipt Date: 20140428
  Transmission Date: 20141212
  Serious: No
  Sender: FDA-Public Use
  Company Number: PHEH2014US003937

PATIENT
  Age: 45 Year
  Sex: Female

DRUGS (1)
  1. GILENYA [Suspect]
     Indication: MULTIPLE SCLEROSIS
     Route: 048
     Dates: start: 20140207

REACTIONS (5)
  - Spider vein [None]
  - Gait disturbance [None]
  - Muscle spasms [None]
  - Feeling cold [None]
  - Hypoaesthesia [None]
